FAERS Safety Report 13993042 (Version 3)
Quarter: 2017Q4

REPORT INFORMATION
  Report Type: Spontaneous
  Country: US (occurrence: US)
  Receive Date: 20170920
  Receipt Date: 20171117
  Transmission Date: 20180321
  Serious: No
  Sender: FDA-Public Use
  Company Number: US-PFIZER INC-2017405120

PATIENT
  Age: 74 Year
  Sex: Female
  Weight: 136.8 kg

DRUGS (4)
  1. ADVIL PM [Suspect]
     Active Substance: DIPHENHYDRAMINE CITRATE\IBUPROFEN
     Indication: SLEEP DISORDER
     Dosage: 2 CAPLETS BY MOUTH AT NIGHT
     Route: 048
  2. ALEVE [Concomitant]
     Active Substance: NAPROXEN SODIUM
     Dosage: 1 A DAY
     Route: 048
     Dates: start: 20170822
  3. ADVIL PM [Suspect]
     Active Substance: DIPHENHYDRAMINE CITRATE\IBUPROFEN
     Dosage: 1 DF, 1X/DAY (BED TIME)
     Dates: start: 20170817
  4. VITAMINS WITH MINERALS [Concomitant]
     Active Substance: MINERALS\VITAMINS
     Dosage: 1 DF, DAILY
     Route: 048
     Dates: start: 20170822

REACTIONS (3)
  - Wrong drug administered [Recovered/Resolved]
  - Drug ineffective [Recovered/Resolved]
  - Product commingling [Recovered/Resolved]

NARRATIVE: CASE EVENT DATE: 20170817
